FAERS Safety Report 5410942-6 (Version None)
Quarter: 2007Q3

REPORT INFORMATION
  Report Type: 
  Country: None (occurrence: None)
  Receive Date: 20070810
  Receipt Date: 20070730
  Transmission Date: 20080115
  Serious: Yes (Other)
  Sender: FDA-Public Use
  Company Number: US-PFIZER INC-2007049939

PATIENT
  Sex: Male
  Weight: 81.818 kg

DRUGS (11)
  1. CHANTIX [Suspect]
     Indication: SMOKING CESSATION THERAPY
  2. MS CONTIN [Concomitant]
  3. SOMA [Concomitant]
  4. VALIUM [Concomitant]
  5. OXY [Concomitant]
  6. PERCOCET [Concomitant]
  7. MSIR [Concomitant]
  8. ADVAIR DISKUS 100/50 [Concomitant]
     Indication: ASTHMA
  9. SPIRIVA [Concomitant]
     Indication: ASTHMA
  10. ALL OTHER THERAPEUTIC PRODUCTS [Concomitant]
     Indication: ASTHMA
  11. ALUPENT [Concomitant]
     Indication: ASTHMA

REACTIONS (3)
  - FATIGUE [None]
  - MULTIPLE SCLEROSIS [None]
  - PAIN [None]
